FAERS Safety Report 9899008 (Version 3)
Quarter: 2014Q2

REPORT INFORMATION
  Report Type: Spontaneous
  Country: PL (occurrence: PL)
  Receive Date: 20140214
  Receipt Date: 20140416
  Transmission Date: 20141212
  Serious: Yes (Hospitalization)
  Sender: FDA-Public Use
  Company Number: PL-GLAXOSMITHKLINE-B0969188A

PATIENT
  Age: 48 Year
  Sex: Female

DRUGS (1)
  1. VOTRIENT [Suspect]
     Indication: RENAL CANCER
     Dosage: 800MG PER DAY
     Route: 048
     Dates: start: 20130906, end: 20131206

REACTIONS (6)
  - Cardiac failure [Recovered/Resolved]
  - Hypertension [Recovered/Resolved]
  - Fatigue [Unknown]
  - Asthenia [Unknown]
  - Left ventricular dysfunction [Recovered/Resolved]
  - Disease progression [Unknown]
